FAERS Safety Report 5345332-8 (Version None)
Quarter: 2007Q2

REPORT INFORMATION
  Report Type: 
  Country: None (occurrence: None)
  Receive Date: 20070601
  Receipt Date: 20070518
  Transmission Date: 20071010
  Serious: Yes (Hospitalization)
  Sender: FDA-Public Use
  Company Number: T200700410

PATIENT
  Age: 47 Year
  Sex: Female

DRUGS (2)
  1. ULTRA-TECHNEKOW [Suspect]
     Indication: BONE SCAN
  2. PAIN MEDICATION [Concomitant]

REACTIONS (5)
  - CONVULSION [None]
  - LOSS OF CONSCIOUSNESS [None]
  - MALAISE [None]
  - PULMONARY EMBOLISM [None]
  - RESPIRATORY ARREST [None]
